FAERS Safety Report 13782391 (Version 1)
Quarter: 2017Q3

REPORT INFORMATION
  Report Type: Spontaneous
  Country: US (occurrence: US)
  Receive Date: 20170724
  Receipt Date: 20170724
  Transmission Date: 20171127
  Serious: No
  Sender: FDA-Public Use
  Company Number: US-PRINSTON PHARMACEUTICAL INC.-2016PRN00127

PATIENT
  Age: 73 Year
  Sex: Female

DRUGS (5)
  1. ^CHOLESTEROL MEDICINE^ [Concomitant]
  2. ^DEPRESSION AND/OR PANIC ATTACK MEDICATION^ [Concomitant]
  3. DONEPEZIL HYDROCHLORIDE. [Suspect]
     Active Substance: DONEPEZIL HYDROCHLORIDE
     Dosage: 5 MG, 1X/DAY
     Route: 048
     Dates: start: 20160603
  4. ^TWO BLOOD PRESSURE MEDICATIONS^ [Concomitant]
  5. ^ARTHRITIS MEDICATION^ [Concomitant]

REACTIONS (2)
  - Fall [Recovered/Resolved]
  - Dizziness [Unknown]

NARRATIVE: CASE EVENT DATE: 20160603
